FAERS Safety Report 10508777 (Version 3)
Quarter: 2014Q4

REPORT INFORMATION
  Report Type: Spontaneous
  Country: GB (occurrence: GB)
  Receive Date: 20141009
  Receipt Date: 20141118
  Transmission Date: 20150528
  Serious: No
  Sender: FDA-Public Use
  Company Number: GB-JNJFOC-20141001467

PATIENT
  Age: 79 Year
  Sex: Female

DRUGS (5)
  1. OSTENIL [Concomitant]
     Route: 065
  2. DURAGESIC [Suspect]
     Active Substance: FENTANYL
     Indication: CHONDROPATHY
     Route: 062
  3. DURAGESIC [Suspect]
     Active Substance: FENTANYL
     Indication: CHONDROPATHY
     Route: 062
  4. DURAGESIC [Suspect]
     Active Substance: FENTANYL
     Indication: ARTHRITIS
     Route: 062
  5. DURAGESIC [Suspect]
     Active Substance: FENTANYL
     Indication: ARTHRITIS
     Route: 062

REACTIONS (4)
  - Pain [Unknown]
  - Wrong technique in drug usage process [Unknown]
  - Drug administered at inappropriate site [Unknown]
  - Product quality issue [Unknown]
